FAERS Safety Report 7889159-1 (Version None)
Quarter: 2011Q4

REPORT INFORMATION
  Report Type: 
  Country: None (occurrence: None)
  Receive Date: 20111103
  Receipt Date: 20111031
  Transmission Date: 20120403
  Serious: Yes (Life-Threatening, Other)
  Sender: FDA-Public Use
  Company Number: JP-PFIZER INC-2011254423

PATIENT
  Age: 73 Year
  Sex: Male
  Weight: 50 kg

DRUGS (17)
  1. GIBONZ [Concomitant]
     Dosage: 1 MG, 3X/DAY
     Route: 048
     Dates: start: 20070315
  2. JUVELA N [Concomitant]
     Dosage: 100 MG, 3X/DAY
     Route: 048
     Dates: start: 20091001
  3. LYRICA [Suspect]
     Indication: CERVICOBRACHIAL SYNDROME
     Dosage: 75 MG, 2X/DAY
     Route: 048
     Dates: start: 20110818, end: 20111003
  4. ANSATUR [Concomitant]
     Dosage: 300 MG, 3X/DAY
     Route: 048
     Dates: start: 20090901
  5. ENALAPRIL MALEATE [Concomitant]
     Dosage: 5 MG, 1X/DAY
     Route: 048
     Dates: start: 20060101
  6. LYRICA [Suspect]
     Indication: PAIN
  7. METFORMIN HCL [Concomitant]
     Dosage: 250 MG, 3X/DAY
     Dates: start: 20080901
  8. OLOPATADINE HCL [Concomitant]
     Dosage: 5 MG, 2X/DAY
     Route: 048
     Dates: start: 20090301
  9. BERAPROST SODIUM [Concomitant]
     Dosage: 20 UG, 3X/DAY
     Route: 048
     Dates: start: 20100201
  10. JANUVIA [Concomitant]
     Dosage: 50 MG, 1X/DAY
     Dates: start: 20100401
  11. HALCION [Concomitant]
     Dosage: 0.25 MG, 1X/DAY
     Route: 048
     Dates: start: 20060101
  12. METHYCOBAL [Concomitant]
     Dosage: 500 UG, 3X/DAY
     Route: 048
     Dates: start: 20080501
  13. MAGNESIUM OXIDE [Concomitant]
     Dosage: 1 G, 1X/DAY
     Route: 048
     Dates: start: 20060101
  14. MUCOSTA [Concomitant]
     Dosage: 100 MG, 3X/DAY
     Dates: start: 20080501
  15. CILOSTAZOL [Concomitant]
     Dosage: 100 MG, 2X/DAY
     Route: 048
     Dates: start: 20060101
  16. GLYBURIDE [Concomitant]
     Dosage: 1.25 MG, 1X/DAY
     Dates: start: 20060101
  17. NEUROTROPIN [Concomitant]
     Dosage: 8 DF, 2X/DAY
     Dates: start: 20080901

REACTIONS (2)
  - ASTHMA [None]
  - THROAT IRRITATION [None]
